FAERS Safety Report 19463171 (Version 1)
Quarter: 2021Q2

REPORT INFORMATION
  Report Type: Spontaneous
  Country: US (occurrence: US)
  Receive Date: 20210627
  Receipt Date: 20210627
  Transmission Date: 20210717
  Serious: No
  Sender: FDA-Public Use
  Company Number: US-ORGANON-O2106USA001497

PATIENT
  Age: 43 Year
  Sex: Female

DRUGS (14)
  1. DEXAMETHASONE. [Concomitant]
     Active Substance: DEXAMETHASONE
     Dosage: UNK
  2. GANIRELIX [Concomitant]
     Active Substance: GANIRELIX
     Dosage: UNK
  3. CLOMIPHENE [CLOMIFENE] [Concomitant]
     Active Substance: CLOMIPHENE
     Dosage: UNK
  4. FOLLISTIM AQ [Suspect]
     Active Substance: FOLLITROPIN
     Indication: INFERTILITY FEMALE
     Dosage: 300 UNITS, QD? AS DIRECTED; STRENGTH: 900 IU/1.08ML
     Route: 058
     Dates: start: 20190813
  5. LEUPROLIDE ACETATE. [Concomitant]
     Active Substance: LEUPROLIDE ACETATE
     Dosage: UNK
  6. LEVOTHYROXIN [Concomitant]
     Active Substance: LEVOTHYROXINE
     Dosage: UNK
  7. OVIDREL [Concomitant]
     Active Substance: CHORIOGONADOTROPIN ALFA
     Dosage: UNK
  8. VITAMIN D [COLECALCIFEROL] [Concomitant]
     Active Substance: CHOLECALCIFEROL
     Dosage: UNK
  9. FOLLISTIM AQ [Suspect]
     Active Substance: FOLLITROPIN
     Dosage: 625 INTERNATIONAL UNIT
     Route: 058
     Dates: start: 20210613
  10. FLUCONAZOLE. [Concomitant]
     Active Substance: FLUCONAZOLE
     Dosage: UNK
  11. ENDOMETRIN [Concomitant]
     Active Substance: PROGESTERONE
     Dosage: UNK
  12. ESTRADIOL. [Concomitant]
     Active Substance: ESTRADIOL
     Dosage: UNK
  13. MENOPUR [Concomitant]
     Active Substance: FOLLITROPIN\LUTEINIZING HORMONE
     Dosage: UNK
  14. PROGESTERONE. [Concomitant]
     Active Substance: PROGESTERONE
     Dosage: UNK

REACTIONS (1)
  - Incorrect dose administered [Unknown]

NARRATIVE: CASE EVENT DATE: 20210613
